FAERS Safety Report 14749076 (Version 1)
Quarter: 2018Q2

REPORT INFORMATION
  Report Type: Spontaneous
  Country: US (occurrence: US)
  Receive Date: 20180411
  Receipt Date: 20180411
  Transmission Date: 20180711
  Serious: No
  Sender: FDA-Public Use
  Company Number: US-AMGEN-USASP2018010173

PATIENT
  Age: 75 Year
  Sex: Female

DRUGS (2)
  1. MS CONTIN [Concomitant]
     Active Substance: MORPHINE SULFATE
     Indication: CANCER PAIN
     Dosage: 2 PILLS IN THE MORNING AND NIGHT
  2. PROLIA [Suspect]
     Active Substance: DENOSUMAB
     Indication: OSTEOPOROSIS
     Dosage: 60 MG, Q6MO
     Route: 065
     Dates: end: 201707

REACTIONS (3)
  - Tremor [Unknown]
  - Pain in jaw [Not Recovered/Not Resolved]
  - Tooth fracture [Unknown]
